FAERS Safety Report 5276438-X (Version None)
Quarter: 2007Q1

REPORT INFORMATION
  Report Type: 
  Country: None (occurrence: None)
  Receive Date: 20061213
  Receipt Date: 20040507
  Transmission Date: 20070707
  Serious: No
  Sender: FDA-Public Use
  Company Number: 2004AC00108

PATIENT
  Age: 82 Year
  Sex: Female

DRUGS (5)
  1. QUETIAPINE FUMARATE [Suspect]
     Indication: MAJOR DEPRESSION
  2. OLANZAPINE [Suspect]
     Indication: MAJOR DEPRESSION
  3. OLANZAPINE [Suspect]
     Indication: PSYCHOTIC DISORDER
  4. RISPERIDONE [Suspect]
     Indication: MAJOR DEPRESSION
  5. RISPERIDONE [Suspect]
     Indication: PSYCHOTIC DISORDER

REACTIONS (1)
  - EXTRAPYRAMIDAL DISORDER [None]
